FAERS Safety Report 13402653 (Version 15)
Quarter: 2018Q2

REPORT INFORMATION
  Report Type: Spontaneous
  Country: US (occurrence: US)
  Receive Date: 20170404
  Receipt Date: 20180607
  Transmission Date: 20180711
  Serious: Yes (Hospitalization)
  Sender: FDA-Public Use
  Company Number: US-ACTELION-A-US2017-151376

PATIENT
  Age: 52 Year
  Sex: Female

DRUGS (17)
  1. REMODULIN [Suspect]
     Active Substance: TREPROSTINIL
     Dosage: 69.4 NG/KG, PER MIN
     Route: 042
     Dates: start: 20170214
  2. REMODULIN [Suspect]
     Active Substance: TREPROSTINIL
     Dosage: 49 NG/KG, PER MIN
     Route: 042
     Dates: start: 20170117
  3. REMODULIN [Suspect]
     Active Substance: TREPROSTINIL
     Dosage: 67.1 NG/KG, PER MIN
     Route: 042
     Dates: start: 20171119
  4. DICYCLOMINE [Concomitant]
     Active Substance: DICYCLOMINE HYDROCHLORIDE
  5. REMODULIN [Suspect]
     Active Substance: TREPROSTINIL
     Dosage: 17.5 NG/KG, PER MIN
     Route: 042
     Dates: start: 20170214
  6. IMODIUM [Concomitant]
     Active Substance: LOPERAMIDE HYDROCHLORIDE
  7. OPSUMIT [Suspect]
     Active Substance: MACITENTAN
     Indication: PULMONARY ARTERIAL HYPERTENSION
     Dosage: 10 MG, QD
     Route: 048
     Dates: start: 20150410, end: 2018
  8. REMODULIN [Suspect]
     Active Substance: TREPROSTINIL
     Indication: PRODUCT USED FOR UNKNOWN INDICATION
     Dosage: 25.7 NG/KG, PER MIN
     Route: 042
     Dates: start: 20170214
  9. REMODULIN [Suspect]
     Active Substance: TREPROSTINIL
     Dosage: 40.1 NG/KG, PER MIN
     Route: 042
     Dates: start: 20170117
  10. REMODULIN [Suspect]
     Active Substance: TREPROSTINIL
     Dosage: 49.1 NG/KG, PER MIN
     Route: 042
     Dates: start: 20170214
  11. SILDENAFIL. [Concomitant]
     Active Substance: SILDENAFIL
     Dosage: 20 MG, TID
     Dates: start: 20170123
  12. FLAGYL [Suspect]
     Active Substance: METRONIDAZOLE\METRONIDAZOLE HYDROCHLORIDE
     Indication: CLOSTRIDIUM DIFFICILE INFECTION
     Route: 065
  13. REMODULIN [Suspect]
     Active Substance: TREPROSTINIL
     Dosage: 21.2 NG/KG, PER MIN
     Route: 042
     Dates: start: 20170308
  14. REMODULIN [Suspect]
     Active Substance: TREPROSTINIL
     Dosage: 73.9 NG/KG, PER MIN
     Route: 042
     Dates: end: 20180525
  15. SILDENAFIL. [Concomitant]
     Active Substance: SILDENAFIL
     Dosage: 80 MG, TID
     Dates: start: 201701
  16. SILDENAFIL. [Concomitant]
     Active Substance: SILDENAFIL
     Dosage: 80 MG, TID
     Dates: start: 20170322
  17. ADEMPAS [Suspect]
     Active Substance: RIOCIGUAT
     Indication: PRODUCT USED FOR UNKNOWN INDICATION
     Route: 065

REACTIONS (13)
  - Syncope [Not Recovered/Not Resolved]
  - Gastrointestinal disorder [Not Recovered/Not Resolved]
  - Flatulence [Not Recovered/Not Resolved]
  - Fluid retention [Not Recovered/Not Resolved]
  - Dyspnoea [Recovering/Resolving]
  - Hypotension [Not Recovered/Not Resolved]
  - Decreased appetite [Not Recovered/Not Resolved]
  - Abdominal distension [Not Recovered/Not Resolved]
  - Lung transplant [Unknown]
  - Nausea [Not Recovered/Not Resolved]
  - Diarrhoea [Not Recovered/Not Resolved]
  - Abdominal discomfort [Not Recovered/Not Resolved]
  - Clostridium difficile infection [Not Recovered/Not Resolved]

NARRATIVE: CASE EVENT DATE: 20170214
